FAERS Safety Report 11496500 (Version 3)
Quarter: 2015Q4

REPORT INFORMATION
  Report Type: Spontaneous
  Country: US (occurrence: US)
  Receive Date: 20150911
  Receipt Date: 20151022
  Transmission Date: 20160304
  Serious: Yes (Hospitalization, Other)
  Sender: FDA-Public Use
  Company Number: US-DSJP-DSU-2015-117709

PATIENT

DRUGS (1)
  1. BENICAR [Suspect]
     Active Substance: OLMESARTAN MEDOXOMIL
     Indication: HYPERTENSION
     Dosage: 20 MG, QD
     Route: 048
     Dates: start: 200705, end: 201305

REACTIONS (26)
  - Malabsorption [Unknown]
  - Gastrointestinal carcinoma [Unknown]
  - Diarrhoea haemorrhagic [Recovering/Resolving]
  - Metabolic alkalosis [Recovered/Resolved]
  - Decreased appetite [Unknown]
  - Constipation [Unknown]
  - Nephrolithiasis [Unknown]
  - B-cell lymphoma [Unknown]
  - Hypokalaemia [Recovered/Resolved]
  - Tongue ulceration [Unknown]
  - Hiatus hernia [Unknown]
  - Epiglottic cyst [Unknown]
  - Diverticulitis [Unknown]
  - Syncope [Unknown]
  - Rectal cancer [Unknown]
  - Fatigue [Not Recovered/Not Resolved]
  - Obstructive uropathy [Unknown]
  - Haemorrhoids [Unknown]
  - Ileostomy [Unknown]
  - Diverticulum intestinal [Unknown]
  - Stress [Not Recovered/Not Resolved]
  - Abdominal distension [Unknown]
  - Proctitis [Unknown]
  - Dizziness [Unknown]
  - Frequent bowel movements [Not Recovered/Not Resolved]
  - Rectal ulcer [Unknown]

NARRATIVE: CASE EVENT DATE: 2010
